FAERS Safety Report 6873747-5 (Version None)
Quarter: 2010Q3

REPORT INFORMATION
  Report Type: 
  Country: None (occurrence: None)
  Receive Date: 20100723
  Receipt Date: 20090224
  Transmission Date: 20110219
  Serious: No
  Sender: FDA-Public Use
  Company Number: US-PFIZER INC-2009178166

PATIENT
  Sex: Female
  Weight: 109 kg

DRUGS (8)
  1. CHANTIX [Suspect]
     Indication: SMOKING CESSATION THERAPY
     Dosage: 1 MG, 2X/DAY
     Dates: start: 20090201
  2. SPIRIVA [Concomitant]
     Dosage: UNK
  3. ADVAIR DISKUS 100/50 [Concomitant]
     Dosage: UNK
  4. MIRAPEX [Concomitant]
     Dosage: UNK
  5. FENOFIBRATE [Concomitant]
     Dosage: UNK
  6. MONTELUKAST [Concomitant]
     Dosage: UNK
  7. LISINOPRIL AND HYDROCHLOROTHIAZIDE [Concomitant]
     Dosage: UNK
  8. ALENDRONATE SODIUM [Concomitant]
     Dosage: UNK

REACTIONS (1)
  - DYSPNOEA [None]
